FAERS Safety Report 23866796 (Version 1)
Quarter: 2024Q2

REPORT INFORMATION
  Report Type: Spontaneous
  Country: DK (occurrence: DK)
  Receive Date: 20240517
  Receipt Date: 20240517
  Transmission Date: 20240716
  Serious: Yes (Hospitalization, Other)
  Sender: FDA-Public Use
  Company Number: DK-AJANTA-2024AJA00090

PATIENT
  Age: 76 Year
  Sex: Female

DRUGS (28)
  1. DOXEPIN HYDROCHLORIDE [Suspect]
     Active Substance: DOXEPIN HYDROCHLORIDE
     Indication: Depression
  2. DOXEPIN HYDROCHLORIDE [Suspect]
     Active Substance: DOXEPIN HYDROCHLORIDE
     Indication: Anxiety
     Dosage: 250 MG DAILY (AND OCCASIONAL EXTRA 50 MG FROM AN OLDER VIAL)
  3. DOXEPIN HYDROCHLORIDE [Suspect]
     Active Substance: DOXEPIN HYDROCHLORIDE
     Dosage: 100 MG IN THE MORNING AND 150 MG AT BEDTIME (WITH NO EXTRA DOSE)
  4. DOXEPIN HYDROCHLORIDE [Suspect]
     Active Substance: DOXEPIN HYDROCHLORIDE
  5. DOXEPIN HYDROCHLORIDE [Suspect]
     Active Substance: DOXEPIN HYDROCHLORIDE
     Dosage: 50 MG IN THE MORNING AND 100 MG AT BEDTIME
  6. VENLAFAXINE [Suspect]
     Active Substance: VENLAFAXINE HYDROCHLORIDE
     Indication: Depression
  7. VENLAFAXINE [Suspect]
     Active Substance: VENLAFAXINE HYDROCHLORIDE
     Indication: Anxiety
  8. VENLAFAXINE [Suspect]
     Active Substance: VENLAFAXINE HYDROCHLORIDE
  9. VENLAFAXINE [Suspect]
     Active Substance: VENLAFAXINE HYDROCHLORIDE
  10. FUROSEMIDE [Suspect]
     Active Substance: FUROSEMIDE
     Indication: Urinary retention
  11. FUROSEMIDE [Suspect]
     Active Substance: FUROSEMIDE
  12. FUROSEMIDE [Suspect]
     Active Substance: FUROSEMIDE
  13. ROSUVASTATIN [Concomitant]
     Active Substance: ROSUVASTATIN
  14. PANTOPRAZOLE [Concomitant]
     Active Substance: PANTOPRAZOLE
  15. INSULIN GLARGINE [Concomitant]
     Active Substance: INSULIN GLARGINE
  16. SEMAGLUTIDE [Concomitant]
     Active Substance: SEMAGLUTIDE
  17. DAPAGLIFLOZIN [Concomitant]
     Active Substance: DAPAGLIFLOZIN
  18. RISEDRONATE SODIUM [Concomitant]
     Active Substance: RISEDRONATE SODIUM
  19. CLOTRIMAZOLE [Concomitant]
     Active Substance: CLOTRIMAZOLE
  20. MAGNESIUM [Concomitant]
     Active Substance: MAGNESIUM
  21. CALCIUM [Concomitant]
     Active Substance: CALCIUM
  22. VITAMIN D [Concomitant]
     Active Substance: VITAMIN D NOS
  23. VITAMIN B12 [Concomitant]
     Active Substance: CYANOCOBALAMIN
  24. COLLAGEN [Concomitant]
     Active Substance: COLLAGEN
  25. FLUTICASONE FUROATE\VILANTEROL TRIFENATATE [Concomitant]
     Active Substance: FLUTICASONE FUROATE\VILANTEROL TRIFENATATE
  26. ALBUTEROL [Concomitant]
     Active Substance: ALBUTEROL
  27. PSEUDOEPHEDRINE [Concomitant]
     Active Substance: PSEUDOEPHEDRINE
  28. DICLOFENAC [Concomitant]
     Active Substance: DICLOFENAC

REACTIONS (2)
  - Dementia [Recovering/Resolving]
  - Nausea [Unknown]
